FAERS Safety Report 4772302-0 (Version None)
Quarter: 2005Q3

REPORT INFORMATION
  Report Type: 
  Country: None (occurrence: None)
  Receive Date: 20050919
  Receipt Date: 20050629
  Transmission Date: 20060218
  Serious: No
  Sender: FDA-Public Use
  Company Number: US-BRISTOL-MYERS SQUIBB COMPANY-13021720

PATIENT
  Age: 45 Year
  Sex: Male
  Weight: 86 kg

DRUGS (11)
  1. DEFINITY [Suspect]
     Indication: CARDIAC STRESS TEST
     Route: 040
     Dates: start: 20050614, end: 20050614
  2. LACTULOSE [Concomitant]
  3. OMEPRAZOLE [Concomitant]
     Route: 048
  4. BUMEX [Concomitant]
  5. IPRATROPIUM + ALBUTEROL [Concomitant]
     Route: 055
  6. FUROSEMIDE [Concomitant]
  7. METHOCARBAMOL [Concomitant]
  8. PROPRANOLOL [Concomitant]
  9. SPIRONOLACTONE [Concomitant]
  10. POTASSIUM CHLORIDE [Concomitant]
  11. CITALOPRAM [Concomitant]

REACTIONS (2)
  - BACK PAIN [None]
  - NECK PAIN [None]
